FAERS Safety Report 21358732 (Version 3)
Quarter: 2022Q4

REPORT INFORMATION
  Report Type: Spontaneous
  Country: GB (occurrence: GB)
  Receive Date: 20220921
  Receipt Date: 20221004
  Transmission Date: 20230112
  Serious: Yes (Other)
  Sender: FDA-Public Use
  Company Number: GB-ROCHE-3174122

PATIENT
  Sex: Male

DRUGS (13)
  1. BENDAMUSTINE [Suspect]
     Active Substance: BENDAMUSTINE
     Indication: Follicular lymphoma
     Route: 042
     Dates: start: 20140801, end: 20160104
  2. ETOPOSIDE [Suspect]
     Active Substance: ETOPOSIDE
     Indication: Follicular lymphoma
     Dosage: FROM 07/JAN/2020 TO 01/MAY/2020 IT WAS GIVEN BEAM CONSOLIDATION/CONDITIONING FOLLOWING R-CHOP, FOLLO
     Route: 065
     Dates: start: 20200107, end: 20200501
  3. MELPHALAN [Suspect]
     Active Substance: MELPHALAN
     Indication: Follicular lymphoma
     Dosage: FROM 07/JAN/2020 TO 01/MAY/2020 IT WAS GIVEN BEAM CONSOLIDATION/CONDITIONING FOLLOWING R-CHOP, FOLLO
     Route: 065
     Dates: start: 20200107, end: 20200501
  4. LENALIDOMIDE [Suspect]
     Active Substance: LENALIDOMIDE
     Indication: Follicular lymphoma
     Dosage: ON 08/SEP/2021 TO 08/DEC/2021, RITUXIMAB-LENALIDOMIDE WAS GIVEN,
     Route: 065
     Dates: start: 20210908, end: 20211208
  5. DOXORUBICIN HYDROCHLORIDE [Suspect]
     Active Substance: DOXORUBICIN HYDROCHLORIDE
     Indication: Follicular lymphoma
     Dosage: FROM 07/JAN/2020 TO  01/MAY/2020 IT WAS GIVEN BEAM CONSOLIDATION/CONDITIONING FOLLOWING R-CHOP, FOLL
     Route: 065
     Dates: start: 20170323, end: 20170701
  6. VINCRISTINE [Suspect]
     Active Substance: VINCRISTINE
     Indication: Follicular lymphoma
     Dosage: FROM 07/JAN/2020 TO  01/MAY/2020 IT WAS GIVEN BEAM CONSOLIDATION/CONDITIONING FOLLOWING R-CHOP, FOLL
     Route: 065
     Dates: start: 20170323, end: 20170701
  7. CARMUSTINE [Suspect]
     Active Substance: CARMUSTINE
     Indication: Follicular lymphoma
     Dosage: FROM 07/JAN/2020 TO 01/MAY/2020 IT WAS GIVEN BEAM CONSOLIDATION/CONDITIONING FOLLOWING R-CHOP, FOLLO
     Route: 065
     Dates: start: 20200107, end: 20200501
  8. CYTARABINE [Suspect]
     Active Substance: CYTARABINE
     Indication: Follicular lymphoma
     Dosage: FROM 07/JAN/2020 TO 01/MAY/2020 IT WAS GIVEN BEAM CONSOLIDATION/CONDITIONING FOLLOWING R-CHOP, FOLLO
     Route: 065
     Dates: start: 20200107, end: 20200501
  9. CYCLOPHOSPHAMIDE [Suspect]
     Active Substance: CYCLOPHOSPHAMIDE
     Indication: Follicular lymphoma
     Dosage: FROM 07/JAN/2020 TO  01/MAY/2020 IT WAS GIVEN BEAM CONSOLIDATION/CONDITIONING FOLLOWING R-CHOP, FOLL
     Route: 065
     Dates: start: 20170323, end: 20170701
  10. PREDNISONE [Suspect]
     Active Substance: PREDNISONE
     Indication: Follicular lymphoma
     Dosage: FROM 07/JAN/2020 TO  01/MAY/2020 IT WAS GIVEN BEAM CONSOLIDATION/CONDITIONING FOLLOWING R-CHOP, FOLL
     Route: 065
     Dates: start: 20170323, end: 20170701
  11. RITUXIMAB [Suspect]
     Active Substance: RITUXIMAB
     Indication: Follicular lymphoma
     Dosage: ON 01/NOV/2020 TO 01/JAN/2021, IT WAS GIVEN IN VARLILUMAB-RITUXIMAB IN THE RIVA STUDY.ON 08/SEP/202
     Route: 065
     Dates: start: 20140801, end: 20160104
  12. RITUXIMAB [Suspect]
     Active Substance: RITUXIMAB
     Dosage: FROM 07/JAN/2020 TO  01/MAY/2020 IT WAS GIVEN BEAM CONSOLIDATION/CONDITIONING FOLLOWING R-CHOP, FOLL
     Route: 065
     Dates: start: 20170323, end: 20170701
  13. VARLILUMAB [Suspect]
     Active Substance: VARLILUMAB
     Indication: Follicular lymphoma
     Dosage: ON 01/NOV/2020 TO 01/JAN/2021, IT WAS GIVEN IN VARLILUMAB-RITUXIMAB IN THE RIVA STUDY
     Route: 065
     Dates: start: 20201101, end: 20210101

REACTIONS (6)
  - Neutropenic sepsis [Unknown]
  - Pancytopenia [Unknown]
  - Disease progression [Unknown]
  - Bacterial infection [Unknown]
  - Viral infection [Unknown]
  - Fungal infection [Unknown]
